FAERS Safety Report 14404586 (Version 2)
Quarter: 2018Q3

REPORT INFORMATION
  Report Type: Spontaneous
  Country: US (occurrence: US)
  Receive Date: 20180117
  Receipt Date: 20180918
  Transmission Date: 20181010
  Serious: Yes (Other)
  Sender: FDA-Public Use
  Company Number: US-SA-2016SA233620

PATIENT
  Age: 46 Year
  Sex: Female
  Weight: 63 kg

DRUGS (13)
  1. DEXAMETHASONE. [Concomitant]
     Active Substance: DEXAMETHASONE
     Dosage: 2 DF,BID
     Route: 048
     Dates: start: 20150930, end: 20160121
  2. POTASSIUM CHLORIDE. [Concomitant]
     Active Substance: POTASSIUM CHLORIDE
     Dosage: 40 MEQ,BID
     Route: 065
     Dates: start: 20151007, end: 20160121
  3. LIDOCAINE. [Concomitant]
     Active Substance: LIDOCAINE
     Indication: PAIN
     Dosage: UNK UNK,PRN
     Route: 048
     Dates: start: 20151009, end: 20160121
  4. DOCETAXEL. [Suspect]
     Active Substance: DOCETAXEL
     Dosage: 152 MG,QCY
     Route: 042
     Dates: start: 20151208, end: 20151208
  5. HYDROXYZINE [Concomitant]
     Active Substance: HYDROXYZINE HYDROCHLORIDE
     Dosage: 50 MG,1X
     Route: 048
     Dates: start: 20151018, end: 20160121
  6. DOCETAXEL. [Suspect]
     Active Substance: DOCETAXEL
     Indication: BREAST CANCER FEMALE
     Dosage: 152 MG,QCY
     Route: 042
     Dates: start: 20151006, end: 20151006
  7. HYDROCODONE [Concomitant]
     Active Substance: HYDROCODONE
     Indication: PAIN
     Dosage: 1 DF,QID
     Route: 048
     Dates: start: 20151027, end: 20151117
  8. ONDANSETRON [Concomitant]
     Active Substance: ONDANSETRON
     Indication: NAUSEA
     Dosage: 1 DF,TID
     Route: 048
     Dates: start: 20150930, end: 20151030
  9. DOXYCYCLINE. [Concomitant]
     Active Substance: DOXYCYCLINE
     Dosage: 1 DF,UNK
     Route: 048
     Dates: start: 20150829, end: 20151117
  10. NYSTATIN. [Concomitant]
     Active Substance: NYSTATIN
     Dosage: 5 ML,QID
     Route: 048
     Dates: start: 20151009, end: 20160121
  11. CYCLOPHOSPHAMIDE. [Concomitant]
     Active Substance: CYCLOPHOSPHAMIDE
  12. PROMETHAZINE [Concomitant]
     Active Substance: PROMETHAZINE\PROMETHAZINE HYDROCHLORIDE
     Indication: NAUSEA
     Dosage: 60 MG,QID
     Route: 048
     Dates: start: 20151006, end: 20151105
  13. TRIAMTERENE. [Concomitant]
     Active Substance: TRIAMTERENE
     Dosage: UNK
     Route: 065
     Dates: start: 20150101

REACTIONS (6)
  - Pain [Unknown]
  - Emotional distress [Unknown]
  - Impaired quality of life [Unknown]
  - Psychological trauma [Unknown]
  - Anxiety [Unknown]
  - Alopecia [Recovering/Resolving]

NARRATIVE: CASE EVENT DATE: 20151027
